FAERS Safety Report 4339304-X (Version None)
Quarter: 2004Q2

REPORT INFORMATION
  Report Type: 
  Country: None (occurrence: None)
  Receive Date: 20040415
  Receipt Date: 20030428
  Transmission Date: 20050107
  Serious: Yes (Death)
  Sender: FDA-Public Use
  Company Number: PHHO2003CL05560

PATIENT
  Age: 66 Year
  Sex: Male

DRUGS (6)
  1. RISPERIDONE [Concomitant]
     Dosage: 3 MG, AT NIGHT
     Route: 048
  2. IBUPROFEN [Concomitant]
  3. RAVOTRIL [Concomitant]
  4. SOMESE [Concomitant]
  5. EXELON [Suspect]
     Indication: DEMENTIA ALZHEIMER'S TYPE
     Dosage: 1.5 MG, BID
     Dates: start: 20020620, end: 20021220
  6. EXELON [Suspect]
     Dosage: 3 MG, QD
     Route: 048
     Dates: start: 20020225

REACTIONS (8)
  - ATRIOVENTRICULAR BLOCK [None]
  - BRADYCARDIA [None]
  - COUGH [None]
  - DELIRIUM [None]
  - DEPRESSION [None]
  - LUNG INFECTION [None]
  - OEDEMA PERIPHERAL [None]
  - PNEUMONIA [None]
